FAERS Safety Report 6177472-8 (Version None)
Quarter: 2009Q2

REPORT INFORMATION
  Report Type: 
  Country: None (occurrence: None)
  Receive Date: 20090501
  Receipt Date: 20090501
  Transmission Date: 20091009
  Serious: No
  Sender: FDA-Public Use
  Company Number: None

PATIENT
  Age: 84 Year
  Sex: Female
  Weight: 60.9 kg

DRUGS (1)
  1. TYLENOL W/ CODEINE NO. 3 [Suspect]
     Indication: PAIN
     Dosage: 2 TAB PO X 1
     Route: 048
     Dates: start: 20090214

REACTIONS (2)
  - LETHARGY [None]
  - SOMNOLENCE [None]
